FAERS Safety Report 10043491 (Version 1)
Quarter: 2014Q1

REPORT INFORMATION
  Report Type: Spontaneous
  Country: US (occurrence: None)
  Receive Date: 20140327
  Receipt Date: 20140327
  Transmission Date: 20141002
  Serious: Yes (Hospitalization)
  Sender: FDA-Public Use
  Company Number: None

PATIENT
  Age: 33 Year
  Sex: Female
  Weight: 98.88 kg

DRUGS (4)
  1. CARBAMAZEPINE [Suspect]
     Indication: SCHIZOAFFECTIVE DISORDER
     Dosage: 1 PILL BID ORAL
     Dates: start: 20131009, end: 20131023
  2. ABILIFY [Concomitant]
  3. TEGRETOL [Concomitant]
  4. TRAZODONE [Concomitant]

REACTIONS (1)
  - Hepatitis acute [None]
